FAERS Safety Report 10809805 (Version 1)
Quarter: 2015Q1

REPORT INFORMATION
  Report Type: Spontaneous
  Country: US (occurrence: None)
  Receive Date: 20150212
  Receipt Date: 20150212
  Transmission Date: 20150721
  Serious: Yes (Hospitalization)
  Sender: FDA-Public Use
  Company Number: None

PATIENT
  Age: 23 Year
  Sex: Female
  Weight: 53.52 kg

DRUGS (4)
  1. BETA-BLOCKERS UNSPECIFIED [Concomitant]
     Active Substance: UNSPECIFIED INGREDIENT
  2. SOLIRIS [Suspect]
     Active Substance: ECULIZUMAB
     Indication: HAEMOLYTIC URAEMIC SYNDROME
     Dosage: GIVEN X3
     Route: 042
     Dates: start: 20150108, end: 20150122
  3. CLONIDINE. [Concomitant]
     Active Substance: CLONIDINE
  4. VANCOMYCIN [Concomitant]
     Active Substance: VANCOMYCIN

REACTIONS (5)
  - Drug reaction with eosinophilia and systemic symptoms [None]
  - Pyrexia [None]
  - Hypertension [None]
  - Headache [None]
  - Generalised tonic-clonic seizure [None]

NARRATIVE: CASE EVENT DATE: 20150204
